FAERS Safety Report 8072441-5 (Version None)
Quarter: 2012Q1

REPORT INFORMATION
  Report Type: 
  Country: None (occurrence: None)
  Receive Date: 20120126
  Receipt Date: 20120123
  Transmission Date: 20120608
  Serious: Yes (Other)
  Sender: FDA-Public Use
  Company Number: RU-BAYER-2012-007691

PATIENT
  Age: 26 Year
  Sex: Female

DRUGS (3)
  1. GLUCOCORTICOIDS [Concomitant]
     Indication: ADRENAL INSUFFICIENCY
     Dosage: UNK
     Dates: start: 20080101
  2. ESTRADIOL VALERATE/DIENOGEST [Suspect]
     Indication: CONTRACEPTION
     Dosage: UNK
     Dates: start: 20111201
  3. ESTRADIOL VALERATE/DIENOGEST [Suspect]
     Indication: MENSTRUAL CYCLE MANAGEMENT

REACTIONS (1)
  - ADRENOCORTICAL INSUFFICIENCY ACUTE [None]
